FAERS Safety Report 8213353-3 (Version None)
Quarter: 2012Q1

REPORT INFORMATION
  Report Type: 
  Country: None (occurrence: None)
  Receive Date: 20120315
  Receipt Date: 20120309
  Transmission Date: 20120608
  Serious: No
  Sender: FDA-Public Use
  Company Number: US-PFIZER INC-2012063398

PATIENT
  Sex: Male

DRUGS (2)
  1. COSAMIN [Concomitant]
     Dosage: UNK IN THE MORNING
  2. XALATAN [Suspect]
     Indication: GLAUCOMA
     Dosage: UNK, AT NIGHT

REACTIONS (2)
  - DRUG INEFFECTIVE [None]
  - PAIN [None]
